FAERS Safety Report 20132047 (Version 1)
Quarter: 2021Q4

REPORT INFORMATION
  Report Type: Report from Study
  Country: DE (occurrence: DE)
  Receive Date: 20211130
  Receipt Date: 20211130
  Transmission Date: 20220303
  Serious: Yes (Death, Hospitalization)
  Sender: FDA-Public Use
  Company Number: DE-009507513-2111DEU006598

PATIENT
  Age: 73 Year
  Sex: Male
  Weight: 87 kg

DRUGS (4)
  1. ALIMTA [Suspect]
     Active Substance: PEMETREXED DISODIUM
     Indication: Non-small cell lung cancer
     Dosage: 280 MG, UNKNOWN
     Route: 065
     Dates: end: 20210427
  2. PEMBROLIZUMAB [Suspect]
     Active Substance: PEMBROLIZUMAB
     Indication: Non-small cell lung cancer
     Dosage: 200 MILLIGRAM, UNK
     Route: 065
     Dates: start: 20210223, end: 20210826
  3. CARBOPLATIN [Suspect]
     Active Substance: CARBOPLATIN
     Indication: Non-small cell lung cancer
     Dosage: 348 MILLIGRAM, UNK
     Route: 065
     Dates: start: 20210223, end: 20210427
  4. CARBOPLATIN [Suspect]
     Active Substance: CARBOPLATIN
     Dosage: 348 MG
     Route: 065
     Dates: start: 20210427

REACTIONS (5)
  - Pneumonia [Fatal]
  - Pancreatitis acute [Fatal]
  - Pancreatitis acute [Fatal]
  - Pneumonia [Fatal]
  - Death [Fatal]

NARRATIVE: CASE EVENT DATE: 20210603
